FAERS Safety Report 7969896-0 (Version None)
Quarter: 2011Q4

REPORT INFORMATION
  Report Type: 
  Country: None (occurrence: None)
  Receive Date: 20111212
  Receipt Date: 20111202
  Transmission Date: 20120403
  Serious: Yes (Hospitalization)
  Sender: FDA-Public Use
  Company Number: DE-UCBSA-043297

PATIENT
  Sex: Male

DRUGS (6)
  1. KEPPRA [Suspect]
     Dosage: AS USED: 1000 MG - 0 -1000 MG
  2. PHENYTOIN [Concomitant]
     Dosage: 100 MG
  3. PHENYTOIN [Concomitant]
  4. KEPPRA [Suspect]
  5. LAMICTAL [Concomitant]
  6. LAMICTAL [Concomitant]
     Dosage: 150 MG

REACTIONS (10)
  - ENCEPHALITIS [None]
  - DISTURBANCE IN ATTENTION [None]
  - PNEUMONIA [None]
  - DYSPHAGIA [None]
  - MONOPARESIS [None]
  - STATUS EPILEPTICUS [None]
  - HYPONATRAEMIA [None]
  - URINARY TRACT INFECTION [None]
  - HYPOCHROMIC ANAEMIA [None]
  - APHASIA [None]
